FAERS Safety Report 25074427 (Version 1)
Quarter: 2025Q1

REPORT INFORMATION
  Report Type: Spontaneous
  Country: US (occurrence: US)
  Receive Date: 20250313
  Receipt Date: 20250313
  Transmission Date: 20250409
  Serious: No
  Sender: PHARMACOSMOS A/S
  Company Number: US-NEBO-687691

PATIENT
  Age: 85 Year
  Sex: Female
  Weight: 64 kg

DRUGS (1)
  1. MONOFERRIC [Suspect]
     Active Substance: FERRIC DERISOMALTOSE
     Indication: Myelodysplastic syndrome with single lineage dysplasia
     Dates: start: 20250211, end: 20250211

REACTIONS (1)
  - Skin discolouration [Unknown]

NARRATIVE: CASE EVENT DATE: 20250212
